FAERS Safety Report 6837615-7 (Version None)
Quarter: 2010Q3

REPORT INFORMATION
  Report Type: 
  Country: None (occurrence: None)
  Receive Date: 20100709
  Receipt Date: 20100628
  Transmission Date: 20110219
  Serious: Yes (Hospitalization)
  Sender: FDA-Public Use
  Company Number: 010274

PATIENT
  Age: 75 Year
  Sex: Female

DRUGS (1)
  1. PLETAL [Suspect]
     Indication: INTERMITTENT CLAUDICATION
     Dosage: 100 MG, QD ORAL
     Route: 048
     Dates: start: 20100601, end: 20100604

REACTIONS (2)
  - CARDIAC FAILURE [None]
  - TACHYARRHYTHMIA [None]
